FAERS Safety Report 8162503-6 (Version None)
Quarter: 2012Q1

REPORT INFORMATION
  Report Type: 
  Country: None (occurrence: None)
  Receive Date: 20120224
  Receipt Date: 20120224
  Transmission Date: 20120608
  Serious: Yes (Other)
  Sender: FDA-Public Use
  Company Number: None

PATIENT
  Sex: Male
  Weight: 83.914 kg

DRUGS (1)
  1. MEFLOQUINE HYDROCHLORIDE [Suspect]

REACTIONS (9)
  - ABNORMAL BEHAVIOUR [None]
  - ANXIETY [None]
  - HEADACHE [None]
  - INSOMNIA [None]
  - DIZZINESS [None]
  - ABNORMAL DREAMS [None]
  - HALLUCINATION [None]
  - SUICIDAL BEHAVIOUR [None]
  - DEPRESSION [None]
